FAERS Safety Report 21290394 (Version 1)
Quarter: 2022Q3

REPORT INFORMATION
  Report Type: Spontaneous
  Country: JP (occurrence: JP)
  Receive Date: 20220902
  Receipt Date: 20220902
  Transmission Date: 20221027
  Serious: Yes (Death, Other)
  Sender: FDA-Public Use
  Company Number: JP-GILEAD-2022-0594187

PATIENT
  Age: 78 Year
  Sex: Male

DRUGS (2)
  1. VEKLURY [Suspect]
     Active Substance: REMDESIVIR
     Indication: COVID-19
     Dosage: 200 ML
     Route: 065
  2. LAGEVRIO [Concomitant]
     Active Substance: MOLNUPIRAVIR

REACTIONS (1)
  - Death [Fatal]
